FAERS Safety Report 20585508 (Version 1)
Quarter: 2022Q1

REPORT INFORMATION
  Report Type: Spontaneous
  Country: AT (occurrence: AT)
  Receive Date: 20220312
  Receipt Date: 20220312
  Transmission Date: 20220424
  Serious: Yes (Other)
  Sender: FDA-Public Use
  Company Number: None

PATIENT
  Age: 78 Year
  Sex: Female

DRUGS (2)
  1. GEMCITABINE [Suspect]
     Active Substance: GEMCITABINE
     Indication: Product used for unknown indication
     Dosage: UNK
     Dates: start: 20200207, end: 20200618
  2. CISPLATIN [Suspect]
     Active Substance: CISPLATIN
     Indication: Product used for unknown indication
     Dosage: UNK
     Dates: start: 20200618, end: 20200618

REACTIONS (6)
  - Metastases to lymph nodes [Unknown]
  - Thrombocytopenia [Unknown]
  - Epistaxis [Unknown]
  - Alopecia [Unknown]
  - Blood creatinine abnormal [Unknown]
  - Paraesthesia [Unknown]
